FAERS Safety Report 14727622 (Version 1)
Quarter: 2018Q2

REPORT INFORMATION
  Report Type: Spontaneous
  Country: GB (occurrence: GB)
  Receive Date: 20180406
  Receipt Date: 20180406
  Transmission Date: 20180711
  Serious: Yes (Death, Hospitalization)
  Sender: FDA-Public Use
  Company Number: GB-TEVA-2018-GB-877214

PATIENT
  Age: 50 Year
  Sex: Male

DRUGS (9)
  1. OLANZAPINE. [Suspect]
     Active Substance: OLANZAPINE
     Dosage: 20 MILLIGRAM DAILY; 2 MONTHS BEFORE THE SURGERY
     Route: 065
  2. CEFUROXIME. [Concomitant]
     Active Substance: CEFUROXIME
     Indication: PROPHYLAXIS
     Route: 065
  3. OLANZAPINE. [Suspect]
     Active Substance: OLANZAPINE
     Indication: MAJOR DEPRESSION
     Dosage: 10 MILLIGRAM DAILY;
     Route: 065
  4. DIAMORPHINE [Concomitant]
     Active Substance: DIAMORPHINE
     Indication: ANAESTHESIA
     Route: 050
  5. MARCAINE [Concomitant]
     Active Substance: BUPIVACAINE HYDROCHLORIDE
     Indication: ANAESTHESIA
     Route: 050
  6. PROPOFOL. [Concomitant]
     Active Substance: PROPOFOL
     Indication: BLOOD PRESSURE MANAGEMENT
     Route: 050
  7. METARAMINOL [Concomitant]
     Active Substance: METARAMINOL
     Indication: BLOOD PRESSURE MANAGEMENT
     Route: 065
  8. ONDANSETRON [Concomitant]
     Active Substance: ONDANSETRON
     Route: 065
  9. BUPIVACAINE. [Concomitant]
     Active Substance: BUPIVACAINE
     Indication: ANAESTHESIA
     Route: 008

REACTIONS (3)
  - Pneumonia [Fatal]
  - Neuroleptic malignant syndrome [Fatal]
  - Acute respiratory distress syndrome [Fatal]
